FAERS Safety Report 12518274 (Version 3)
Quarter: 2016Q3

REPORT INFORMATION
  Report Type: Spontaneous
  Country: US (occurrence: US)
  Receive Date: 20160630
  Receipt Date: 20160809
  Transmission Date: 20161109
  Serious: No
  Sender: FDA-Public Use
  Company Number: US-ASTRAZENECA-2016SE70264

PATIENT
  Age: 81 Year
  Sex: Female
  Weight: 61.2 kg

DRUGS (3)
  1. NEXIUM 24HR [Suspect]
     Active Substance: ESOMEPRAZOLE MAGNESIUM
     Indication: THERMAL BURN
     Dosage: 20MG, ONE CAPSULE AN HOUR OR A HALF HOUR BEFORE BREAKFAST
     Route: 048
     Dates: start: 201604, end: 201606
  2. NEXIUM 24HR [Suspect]
     Active Substance: ESOMEPRAZOLE MAGNESIUM
     Indication: CHEST DISCOMFORT
     Dosage: 20MG, ONE CAPSULE AN HOUR OR A HALF HOUR BEFORE BREAKFAST
     Route: 048
     Dates: start: 201604, end: 201606
  3. NEXIUM 24HR [Suspect]
     Active Substance: ESOMEPRAZOLE MAGNESIUM
     Indication: ERUCTATION
     Dosage: 20MG, ONE CAPSULE AN HOUR OR A HALF HOUR BEFORE BREAKFAST
     Route: 048
     Dates: start: 201604, end: 201606

REACTIONS (6)
  - Nausea [Not Recovered/Not Resolved]
  - Dyspepsia [Not Recovered/Not Resolved]
  - Product quality issue [Unknown]
  - Product colour issue [Unknown]
  - Product use issue [Recovered/Resolved]
  - Poor quality drug administered [Unknown]

NARRATIVE: CASE EVENT DATE: 201604
